FAERS Safety Report 7463100-8 (Version None)
Quarter: 2011Q2

REPORT INFORMATION
  Report Type: 
  Country: None (occurrence: None)
  Receive Date: 20110506
  Receipt Date: 20110426
  Transmission Date: 20111010
  Serious: Yes (Hospitalization)
  Sender: FDA-Public Use
  Company Number: US-ROCHE-676240

PATIENT
  Sex: Female
  Weight: 71.5 kg

DRUGS (23)
  1. NORTRIPTYLINE [Concomitant]
     Dates: start: 20020101
  2. PLAVIX [Concomitant]
     Dates: start: 20020301
  3. PREMARIN [Concomitant]
     Dates: start: 20090521
  4. METOPROLOL SUCCINATE [Concomitant]
     Dates: start: 20090326
  5. PRILOSEC [Concomitant]
     Dates: start: 20000310
  6. COLACE [Concomitant]
     Dates: start: 20091215
  7. NORTRIPTYLINE [Concomitant]
     Dosage: FREQUENCY: QD
     Dates: start: 20030301
  8. ACETAMINOPHEN [Concomitant]
     Dosage: PRE-INFUSION
     Dates: start: 20081006
  9. ACTEMRA [Suspect]
     Indication: RHEUMATOID ARTHRITIS
     Dosage: ROUTE, DOSE AND FREQUENCY AS PER PROTOCOL
     Route: 042
     Dates: end: 20091202
  10. DARVOCET-N 50 [Concomitant]
     Route: 042
     Dates: start: 20000101
  11. METOPROLOL SUCCINATE [Concomitant]
     Dates: start: 20030310
  12. AVALIDE [Concomitant]
     Dosage: TDD: 300/ 12.5 MG
     Dates: start: 20030301
  13. NORVASC [Concomitant]
     Dates: start: 20001215
  14. ACTEMRA [Suspect]
     Indication: RHEUMATOID ARTHRITIS
     Route: 042
     Dates: start: 20081006
  15. NORTRIPTYLINE [Concomitant]
     Dates: start: 20081201
  16. PLAVIX [Concomitant]
     Dates: start: 20091201
  17. LOPRESSOR [Concomitant]
  18. ZETIA [Concomitant]
     Dates: start: 20040310
  19. NORTRIPTYLINE [Concomitant]
     Dates: start: 19930101
  20. METHOTREXATE [Concomitant]
     Dates: start: 20080618
  21. FOLIC ACID [Concomitant]
     Dates: start: 20080310
  22. DIOVAN HCT [Concomitant]
  23. ACETAMINOPHEN [Concomitant]

REACTIONS (4)
  - OSTEOMYELITIS [None]
  - LOCALISED INFECTION [None]
  - BACTERAEMIA [None]
  - BACK PAIN [None]
